FAERS Safety Report 5444158-4 (Version None)
Quarter: 2007Q3

REPORT INFORMATION
  Report Type: 
  Country: None (occurrence: None)
  Receive Date: 20070904
  Receipt Date: 20070904
  Transmission Date: 20080115
  Serious: Yes (Hospitalization)
  Sender: FDA-Public Use
  Company Number: None

PATIENT
  Sex: Male
  Weight: 99.7913 kg

DRUGS (4)
  1. AVASTIN [Suspect]
     Indication: MACULAR DEGENERATION
     Dosage: .05MG 1 MO FOR 3 MO. EYE
     Dates: start: 20060801
  2. AVASTIN [Suspect]
     Indication: MACULAR DEGENERATION
     Dosage: .05MG 1 MO FOR 3 MO. EYE
     Dates: start: 20060901
  3. AVASTIN [Suspect]
     Indication: MACULAR DEGENERATION
     Dosage: .05MG 1 MO FOR 3 MO. EYE
     Dates: start: 20061001
  4. LUCENTIS [Concomitant]

REACTIONS (1)
  - CEREBROVASCULAR ACCIDENT [None]
